FAERS Safety Report 5035540-8 (Version None)
Quarter: 2006Q2

REPORT INFORMATION
  Report Type: 
  Country: None (occurrence: None)
  Receive Date: 20060526
  Receipt Date: 20060314
  Transmission Date: 20061013
  Serious: No
  Sender: FDA-Public Use
  Company Number: 223020

PATIENT
  Age: 24 Year
  Sex: Male

DRUGS (4)
  1. RAPTIVA [Suspect]
     Indication: PSORIASIS
     Dosage: SEE IMAGE
     Route: 058
     Dates: start: 20060309, end: 20060309
  2. RAPTIVA [Suspect]
     Indication: PSORIASIS
     Dosage: SEE IMAGE
     Route: 058
     Dates: start: 20060316
  3. SINGULAIR [Concomitant]
  4. ALBUTEROL INHALER (ALBUTEROL/ALBUTEROL SULFATE) [Concomitant]

REACTIONS (3)
  - HEADACHE [None]
  - MYALGIA [None]
  - OCULAR HYPERAEMIA [None]
